FAERS Safety Report 5645003-4 (Version None)
Quarter: 2008Q1

REPORT INFORMATION
  Report Type: 
  Country: None (occurrence: None)
  Receive Date: 20080229
  Receipt Date: 20071231
  Transmission Date: 20080703
  Serious: No
  Sender: FDA-Public Use
  Company Number: A0701290A

PATIENT
  Sex: Male

DRUGS (1)
  1. VALTREX [Suspect]
     Indication: ILL-DEFINED DISORDER
     Route: 048

REACTIONS (1)
  - ILL-DEFINED DISORDER [None]
